FAERS Safety Report 4722960-1 (Version None)
Quarter: 2005Q3

REPORT INFORMATION
  Report Type: 
  Country: None (occurrence: None)
  Receive Date: 20050722
  Receipt Date: 20050406
  Transmission Date: 20060218
  Serious: Yes (Hospitalization)
  Sender: FDA-Public Use
  Company Number: JP-MERCK-0504USA01329

PATIENT
  Age: 70 Year
  Sex: Female
  Weight: 53 kg

DRUGS (6)
  1. FOSAMAX [Suspect]
     Indication: OSTEOPOROSIS
     Route: 048
     Dates: start: 20050312
  2. FOSAMAX [Suspect]
     Route: 048
     Dates: start: 20030920, end: 20040920
  3. GASTROINTESTINAL PREPARATIONS (UNSPECIFIED) [Concomitant]
     Route: 065
     Dates: end: 20050320
  4. [THERAPY UNSPECIFIED] [Suspect]
     Indication: PAIN
     Route: 048
     Dates: start: 20050305
  5. SOLETON [Suspect]
     Indication: PAIN
     Route: 048
     Dates: start: 20050305
  6. NEUER [Suspect]
     Indication: GASTRITIS
     Route: 048
     Dates: start: 20050305

REACTIONS (11)
  - ALANINE AMINOTRANSFERASE INCREASED [None]
  - ASPARTATE AMINOTRANSFERASE INCREASED [None]
  - BACK PAIN [None]
  - BLOOD BILIRUBIN INCREASED [None]
  - BLOOD LACTATE DEHYDROGENASE INCREASED [None]
  - CHOLELITHIASIS [None]
  - EOSINOPHIL COUNT INCREASED [None]
  - GAMMA-GLUTAMYLTRANSFERASE INCREASED [None]
  - LIVER DISORDER [None]
  - NAUSEA [None]
  - VOMITING [None]
